FAERS Safety Report 9148896 (Version 1)
Quarter: 2013Q1

REPORT INFORMATION
  Report Type: Spontaneous
  Country: US (occurrence: None)
  Receive Date: 20130227
  Receipt Date: 20130227
  Transmission Date: 20140127
  Serious: Yes (Other)
  Sender: FDA-Public Use
  Company Number: None

PATIENT
  Sex: Female
  Weight: 104.33 kg

DRUGS (1)
  1. WELCHOL [Suspect]
     Indication: LOW DENSITY LIPOPROTEIN
     Dosage: 1 DAY PO
     Route: 048
     Dates: start: 20100303, end: 20100308

REACTIONS (2)
  - Pain [None]
  - Influenza like illness [None]
